FAERS Safety Report 6021093-4 (Version None)
Quarter: 2008Q4

REPORT INFORMATION
  Report Type: 
  Country: None (occurrence: None)
  Receive Date: 20081229
  Receipt Date: 20081213
  Transmission Date: 20090506
  Serious: Yes (Hospitalization)
  Sender: FDA-Public Use
  Company Number: US-PFIZER INC-2008156496

PATIENT
  Sex: Female
  Weight: 45.351 kg

DRUGS (2)
  1. CHANTIX [Suspect]
     Indication: SMOKING CESSATION THERAPY
     Dates: start: 20080901
  2. ALL OTHER THERAPEUTIC PRODUCTS [Concomitant]
     Indication: CONVULSION
     Dosage: UNK

REACTIONS (1)
  - CONFUSIONAL STATE [None]
